FAERS Safety Report 7765122-6 (Version None)
Quarter: 2011Q3

REPORT INFORMATION
  Report Type: 
  Country: None (occurrence: None)
  Receive Date: 20110921
  Receipt Date: 20110916
  Transmission Date: 20111222
  Serious: Yes (Hospitalization)
  Sender: FDA-Public Use
  Company Number: FR-ROCHE-803277

PATIENT
  Sex: Female

DRUGS (7)
  1. ACUPAN [Concomitant]
     Dosage: DOSE WAS UNKNOWN.
     Route: 042
     Dates: start: 20110325, end: 20110406
  2. FLAGYL [Suspect]
     Route: 065
     Dates: start: 20110325, end: 20110330
  3. ACETAMINOPHEN [Concomitant]
     Route: 042
     Dates: start: 20110325
  4. NEXIUM [Concomitant]
  5. ROCEPHIN [Suspect]
     Dosage: FREQUENCY:IN 24 HOURS
     Route: 065
     Dates: start: 20110325, end: 20110330
  6. SPASFON [Suspect]
     Route: 042
     Dates: start: 20110325, end: 20110401
  7. NEXIUM [Concomitant]
     Dates: start: 20110327, end: 20110430

REACTIONS (2)
  - POST PROCEDURAL HAEMORRHAGE [None]
  - THROMBOCYTOPENIA [None]
